FAERS Safety Report 10388148 (Version 2)
Quarter: 2014Q3

REPORT INFORMATION
  Report Type: Report from Study
  Country: DE (occurrence: DE)
  Receive Date: 20140815
  Receipt Date: 20140825
  Transmission Date: 20150326
  Serious: Yes (Hospitalization)
  Sender: FDA-Public Use
  Company Number: PHHY2014DE097360

PATIENT
  Sex: Male
  Weight: 66 kg

DRUGS (6)
  1. ASS AL [Concomitant]
     Dosage: 1 DF, QD
     Dates: start: 20090213
  2. NO TREATMENT RECEIVED [Suspect]
     Active Substance: UNSPECIFIED INGREDIENT
  3. LOCOL [Concomitant]
     Active Substance: FLUVASTATIN SODIUM
     Dosage: 80 MG, QD
     Dates: start: 20090213
  4. ULTIBRO BREEZHALER [Suspect]
     Active Substance: GLYCOPYRRONIUM\INDACATEROL
     Indication: CHRONIC OBSTRUCTIVE PULMONARY DISEASE
     Dosage: 1 DF, QD
     Route: 055
     Dates: start: 20140730, end: 20140805
  5. DAFIRO [Concomitant]
     Active Substance: AMLODIPINE\VALSARTAN
     Dosage: 1 DF, QD
     Dates: start: 20100526
  6. SALBUTAMOL CT [Concomitant]
     Dosage: 1 DF, PRN
     Dates: start: 20140220

REACTIONS (2)
  - Dyspnoea [Unknown]
  - Chest pain [Unknown]

NARRATIVE: CASE EVENT DATE: 20140805
